FAERS Safety Report 7421554-7 (Version None)
Quarter: 2011Q2

REPORT INFORMATION
  Report Type: 
  Country: None (occurrence: None)
  Receive Date: 20110418
  Receipt Date: 20110411
  Transmission Date: 20111010
  Serious: Yes (Other)
  Sender: FDA-Public Use
  Company Number: US-KINGPHARMUSA00001-K201100429

PATIENT

DRUGS (1)
  1. FLECTOR [Suspect]
     Dosage: 1 PATCH, SINGLE
     Route: 061

REACTIONS (1)
  - GRAND MAL CONVULSION [None]
